FAERS Safety Report 16011217 (Version 2)
Quarter: 2019Q2

REPORT INFORMATION
  Report Type: Spontaneous
  Country: DE (occurrence: DE)
  Receive Date: 20190227
  Receipt Date: 20190403
  Transmission Date: 20190711
  Serious: Yes (Other)
  Sender: FDA-Public Use
  Company Number: DE-ROCHE-2271219

PATIENT
  Age: 39 Year
  Sex: Female
  Weight: 57 kg

DRUGS (2)
  1. KANJINTI [Suspect]
     Active Substance: TRASTUZUMAB-ANNS
     Indication: HER-2 POSITIVE BREAST CANCER
     Route: 042
     Dates: start: 20180517, end: 20190128
  2. PERJETA [Suspect]
     Active Substance: PERTUZUMAB
     Indication: HER-2 POSITIVE BREAST CANCER
     Route: 042
     Dates: start: 20180517, end: 20190128

REACTIONS (2)
  - Pulmonary toxicity [Recovering/Resolving]
  - Pulmonary fibrosis [Unknown]

NARRATIVE: CASE EVENT DATE: 20190212
